FAERS Safety Report 6214722-3 (Version None)
Quarter: 2009Q2

REPORT INFORMATION
  Report Type: 
  Country: None (occurrence: None)
  Receive Date: 20090604
  Receipt Date: 20090527
  Transmission Date: 20091009
  Serious: Yes (Hospitalization)
  Sender: FDA-Public Use
  Company Number: A0786436A

PATIENT
  Age: 66 Year
  Sex: Female

DRUGS (11)
  1. COREG CR [Suspect]
     Indication: HYPERTENSION
     Dosage: 40MG PER DAY
     Route: 048
     Dates: start: 20070101
  2. PLAVIX [Concomitant]
  3. ASPIRIN [Concomitant]
  4. PRILOSEC [Concomitant]
  5. CENTRUM SILVER [Concomitant]
  6. VITAMIN B COMPLEX CAP [Concomitant]
  7. ZANAFLEX [Concomitant]
  8. LEVALBUTEROL HCL [Concomitant]
  9. XALATAN [Concomitant]
  10. ISOSORBIDE [Concomitant]
  11. TEKTURNA [Concomitant]

REACTIONS (4)
  - FATIGUE [None]
  - MYOCARDIAL INFARCTION [None]
  - PAIN [None]
  - SOMNOLENCE [None]
